FAERS Safety Report 8204950-X (Version None)
Quarter: 2012Q1

REPORT INFORMATION
  Report Type: 
  Country: None (occurrence: None)
  Receive Date: 20120313
  Receipt Date: 20120307
  Transmission Date: 20120608
  Serious: Yes (Other)
  Sender: FDA-Public Use
  Company Number: US-PFIZER INC-2011232672

PATIENT
  Age: 62 Year
  Sex: Female

DRUGS (1)
  1. LEVOXYL [Suspect]
     Indication: THYROID HORMONE REPLACEMENT THERAPY
     Dosage: UNK
     Route: 048

REACTIONS (7)
  - DYSPNOEA [None]
  - GAIT DISTURBANCE [None]
  - MALAISE [None]
  - MUSCLE TIGHTNESS [None]
  - DYSARTHRIA [None]
  - THYROID FUNCTION TEST ABNORMAL [None]
  - EYE OEDEMA [None]
